FAERS Safety Report 21519132 (Version 1)
Quarter: 2022Q4

REPORT INFORMATION
  Report Type: Spontaneous
  Country: US (occurrence: US)
  Receive Date: 20221028
  Receipt Date: 20221028
  Transmission Date: 20230112
  Serious: No
  Sender: FDA-Public Use
  Company Number: ALC2022US004104

PATIENT
  Sex: Female
  Weight: 77.098 kg

DRUGS (3)
  1. INVELTYS [Suspect]
     Active Substance: LOTEPREDNOL ETABONATE
     Indication: Conjunctival haemorrhage
     Dosage: 1 DROP, 1X/DAY IN EACH EYE (PROPHYLACTIC)
     Route: 047
     Dates: start: 2020
  2. INVELTYS [Suspect]
     Active Substance: LOTEPREDNOL ETABONATE
     Indication: Iritis
     Dosage: 1 DROP, 1X/HOUR IN AFFECTED EYE AND THEN TAPER PER THE DOCTOR^S DIRECTIONS (WITH ACTIVE BLEED)
     Route: 047
  3. UNSPECIFIED INGREDIENT [Concomitant]
     Active Substance: UNSPECIFIED INGREDIENT
     Indication: Product used for unknown indication
     Route: 065

REACTIONS (2)
  - Off label use [Not Recovered/Not Resolved]
  - Incorrect dose administered [Not Recovered/Not Resolved]
